FAERS Safety Report 7552279-5 (Version None)
Quarter: 2011Q2

REPORT INFORMATION
  Report Type: 
  Country: None (occurrence: None)
  Receive Date: 20110616
  Receipt Date: 20050301
  Transmission Date: 20111010
  Serious: Yes (Death)
  Sender: FDA-Public Use
  Company Number: PHHO2005JP02747

PATIENT
  Sex: Male
  Weight: 62 kg

DRUGS (4)
  1. WARFARIN SODIUM [Suspect]
     Dosage: 0.5 MG, UNK
     Route: 048
     Dates: start: 20020613, end: 20041202
  2. DIOVAN [Suspect]
     Indication: HYPERTENSION
     Dosage: 40 MG, QD
     Route: 048
     Dates: start: 20021205, end: 20041202
  3. PARAMIDIN [Suspect]
     Dosage: 300 MG, UNK
     Route: 048
     Dates: start: 20020613, end: 20041202
  4. DIGOXIN [Suspect]
     Indication: CARDIAC FAILURE
     Dosage: 0.25 MG, UNK
     Route: 048
     Dates: start: 20020613, end: 20041202

REACTIONS (1)
  - CEREBRAL HAEMORRHAGE [None]
